FAERS Safety Report 16904654 (Version 4)
Quarter: 2020Q1

REPORT INFORMATION
  Report Type: Spontaneous
  Country: CO (occurrence: CO)
  Receive Date: 20191010
  Receipt Date: 20200128
  Transmission Date: 20200409
  Serious: Yes (Other)
  Sender: FDA-Public Use
  Company Number: CO-JNJFOC-20191006235

PATIENT
  Age: 50 Year
  Sex: Female
  Weight: 51 kg

DRUGS (9)
  1. OMEPRAZOLE. [Concomitant]
     Active Substance: OMEPRAZOLE
     Indication: GASTRITIS
     Dosage: 20 MG
  2. RIVAROXABAN [Suspect]
     Active Substance: RIVAROXABAN
     Indication: PRODUCT USED FOR UNKNOWN INDICATION
     Dosage: 15 MG
     Route: 048
     Dates: start: 2017
  3. ADEMPAS [Suspect]
     Active Substance: RIOCIGUAT
     Indication: PULMONARY HYPERTENSION
     Dosage: UNK
     Route: 065
  4. EYLIA [Suspect]
     Active Substance: AFLIBERCEPT
     Indication: RETINAL DETACHMENT
     Dosage: UNK UNK, ONCE
     Route: 065
     Dates: start: 20190220, end: 20190220
  5. FUROSEMIDE. [Concomitant]
     Active Substance: FUROSEMIDE
     Indication: FLUID RETENTION
     Dosage: 40 MG
  6. ADEMPAS [Suspect]
     Active Substance: RIOCIGUAT
     Dosage: 2.5 MG, TID
     Route: 065
     Dates: start: 20160404
  7. ALUMINUM HYDROXIDE [ALUMINIUM HYDROXIDE] [Concomitant]
     Active Substance: ALUMINUM HYDROXIDE
     Dosage: UNK
  8. SPIRONOLACTONE. [Concomitant]
     Active Substance: SPIRONOLACTONE
     Indication: FLUID RETENTION
     Dosage: 25 MG
  9. EYLIA [Suspect]
     Active Substance: AFLIBERCEPT
     Indication: GLAUCOMA
     Dosage: UNK UNK, ONCE
     Route: 065
     Dates: start: 201811, end: 201811

REACTIONS (15)
  - Product use in unapproved indication [Unknown]
  - Cough [Not Recovered/Not Resolved]
  - Eye irritation [Not Recovered/Not Resolved]
  - Dyspnoea [Not Recovered/Not Resolved]
  - Blindness unilateral [Not Recovered/Not Resolved]
  - Off label use [Unknown]
  - Glaucoma [Not Recovered/Not Resolved]
  - Inappropriate schedule of product administration [Unknown]
  - Chest discomfort [Unknown]
  - Eye haemorrhage [Not Recovered/Not Resolved]
  - Foreign body sensation in eyes [Not Recovered/Not Resolved]
  - Lung disorder [Not Recovered/Not Resolved]
  - Eye laser surgery [Unknown]
  - Eye pain [Not Recovered/Not Resolved]
  - Cataract operation [Unknown]

NARRATIVE: CASE EVENT DATE: 201810
